FAERS Safety Report 4299371-9 (Version None)
Quarter: 2004Q1

REPORT INFORMATION
  Report Type: 
  Country: None (occurrence: None)
  Receive Date: 20040219
  Receipt Date: 20031209
  Transmission Date: 20041129
  Serious: No
  Sender: FDA-Public Use
  Company Number: US-GLAXOSMITHKLINE-A0442557A

PATIENT

DRUGS (4)
  1. AVODART [Suspect]
     Indication: BENIGN PROSTATIC HYPERPLASIA
     Dosage: 1CAP PER DAY
     Route: 048
  2. FLOMAX [Concomitant]
  3. LOPID [Concomitant]
  4. PRILOSEC [Concomitant]

REACTIONS (1)
  - LIBIDO DECREASED [None]
